FAERS Safety Report 19259102 (Version 1)
Quarter: 2021Q2

REPORT INFORMATION
  Report Type: Spontaneous
  Country: US (occurrence: US)
  Receive Date: 20210514
  Receipt Date: 20210514
  Transmission Date: 20210717
  Serious: No
  Sender: FDA-Public Use
  Company Number: US-ROMARKLABS-2020-US-000261

PATIENT
  Age: 74 Year
  Sex: Female

DRUGS (22)
  1. DIGESTIVE ENZYMES [Concomitant]
     Active Substance: UNSPECIFIED INGREDIENT
     Indication: PRODUCT USED FOR UNKNOWN INDICATION
  2. ESSENTIAL BLEND PROBIOTICS [Concomitant]
     Indication: PRODUCT USED FOR UNKNOWN INDICATION
  3. FAMOTIDINE. [Concomitant]
     Active Substance: FAMOTIDINE
     Indication: PRODUCT USED FOR UNKNOWN INDICATION
  4. VITAMIN B12 [Concomitant]
     Active Substance: CYANOCOBALAMIN
     Indication: NUTRITIONAL SUPPLEMENTATION
  5. PROBIOTICS [Concomitant]
     Active Substance: PROBIOTICS NOS
     Indication: PRODUCT USED FOR UNKNOWN INDICATION
  6. OMEGAVAIL SUPPLEMENT [Concomitant]
     Indication: PRODUCT USED FOR UNKNOWN INDICATION
  7. MAGNESIUM [Concomitant]
     Active Substance: MAGNESIUM
     Indication: NUTRITIONAL SUPPLEMENTATION
  8. CALCIUM [Concomitant]
     Active Substance: CALCIUM
     Indication: NUTRITIONAL SUPPLEMENTATION
  9. BORON MINERAL [Concomitant]
     Indication: PRODUCT USED FOR UNKNOWN INDICATION
  10. ELIQUIS [Concomitant]
     Active Substance: APIXABAN
     Indication: PRODUCT USED FOR UNKNOWN INDICATION
  11. EYEPROMISE SUPPLEMENT [Concomitant]
     Indication: PRODUCT USED FOR UNKNOWN INDICATION
  12. GAIA BLACK ELDERBERRY [Concomitant]
     Indication: PRODUCT USED FOR UNKNOWN INDICATION
  13. INTESTINAL DEFENSE SUPPLEMENT [Concomitant]
     Indication: PRODUCT USED FOR UNKNOWN INDICATION
  14. AI FORMULA PURE SUPPLEMENT [Concomitant]
     Indication: PRODUCT USED FOR UNKNOWN INDICATION
  15. VITAMIN D [Concomitant]
     Active Substance: VITAMIN D NOS
     Indication: NUTRITIONAL SUPPLEMENTATION
  16. FERROCHEL IRON [Concomitant]
     Indication: PRODUCT USED FOR UNKNOWN INDICATION
  17. DICYCLOMINE [Concomitant]
     Active Substance: DICYCLOMINE HYDROCHLORIDE
     Indication: PRODUCT USED FOR UNKNOWN INDICATION
  18. ALINIA [Suspect]
     Active Substance: NITAZOXANIDE
     Indication: PRODUCT USED FOR UNKNOWN INDICATION
     Dosage: TAKE ONE TABLET BY MOUTH EVERY 12 HOURS FOR 10 DAYS
     Route: 048
     Dates: start: 20200929
  19. MCT OIL [Concomitant]
     Indication: PRODUCT USED FOR UNKNOWN INDICATION
  20. IRON [Suspect]
     Active Substance: IRON
     Indication: NUTRITIONAL SUPPLEMENTATION
  21. BIOTIN [Concomitant]
     Active Substance: BIOTIN
     Indication: NUTRITIONAL SUPPLEMENTATION
  22. IV GARD SUPPLEMENT [Concomitant]
     Indication: PRODUCT USED FOR UNKNOWN INDICATION

REACTIONS (2)
  - Diarrhoea [Unknown]
  - Flatulence [Unknown]

NARRATIVE: CASE EVENT DATE: 20200930
